FAERS Safety Report 4767104-5 (Version None)
Quarter: 2005Q3

REPORT INFORMATION
  Report Type: 
  Country: None (occurrence: None)
  Receive Date: 20050908
  Receipt Date: 20050831
  Transmission Date: 20060218
  Serious: Yes (Other)
  Sender: FDA-Public Use
  Company Number: 2005054839

PATIENT
  Age: 3 Year
  Sex: Female
  Weight: 16 kg

DRUGS (8)
  1. ZYVOX [Suspect]
     Indication: TUBERCULOSIS
     Dosage: UNKNOWN (300 MG), INTRAVENOUS
     Route: 042
  2. RIFABUTIN CAPSULE (RIFABUTIN) [Suspect]
     Indication: TUBERCULOSIS
     Dosage: UNKNOWN (110 MG, UNKNOWN), ORAL
     Route: 048
  3. MYAMBUTOL [Concomitant]
  4. CLARITHROMYCIN [Concomitant]
  5. AMIKIN [Concomitant]
  6. PLITICAN (ALIZAPRIDE HYDROCHLORIDE) [Concomitant]
  7. MOXIFLOXACIN HCL [Concomitant]
  8. URSOLVAN-200 (URSODEOXYCHOLIC ACID) [Concomitant]

REACTIONS (5)
  - ASCITES [None]
  - METABOLIC ACIDOSIS [None]
  - OEDEMA [None]
  - OVERDOSE [None]
  - THROMBOCYTOPENIA [None]
